FAERS Safety Report 10202428 (Version 2)
Quarter: 2014Q2

REPORT INFORMATION
  Report Type: Spontaneous
  Country: US (occurrence: US)
  Receive Date: 20140528
  Receipt Date: 20140616
  Transmission Date: 20141212
  Serious: Yes (Other)
  Sender: FDA-Public Use
  Company Number: US-PFIZER INC-2014143109

PATIENT
  Age: 68 Year
  Sex: Female
  Weight: 79.37 kg

DRUGS (8)
  1. LIPITOR [Suspect]
     Indication: BLOOD CHOLESTEROL INCREASED
     Dosage: 20 MG, 1X/DAY
     Route: 048
     Dates: start: 2012, end: 20140415
  2. LIPITOR [Suspect]
     Dosage: 20 MG, ALTERNATE DAY
     Dates: start: 20140415
  3. IMURAN [Concomitant]
     Indication: COLITIS ULCERATIVE
     Dosage: UNK
  4. LOSARTAN [Concomitant]
     Dosage: 100 MG, UNK
  5. NORVASC [Concomitant]
     Dosage: 5 MG, UNK
  6. ATENOLOL [Concomitant]
     Dosage: 50 MG, UNK
  7. HYDROCHLOROTHIAZIDE [Concomitant]
     Dosage: 25 MG, UNK
  8. ASPIRIN [Concomitant]
     Dosage: UNK, 1X/DAY

REACTIONS (5)
  - Muscle spasms [Recovering/Resolving]
  - Musculoskeletal stiffness [Recovering/Resolving]
  - Gait disturbance [Recovering/Resolving]
  - Drug intolerance [Recovering/Resolving]
  - Intentional product misuse [Unknown]
